FAERS Safety Report 4640080-1 (Version None)
Quarter: 2005Q2

REPORT INFORMATION
  Report Type: 
  Country: None (occurrence: None)
  Receive Date: 20050328
  Receipt Date: 20050203
  Transmission Date: 20051028
  Serious: No
  Sender: FDA-Public Use
  Company Number: USA050289882

PATIENT
  Age: 44 Year
  Sex: Male

DRUGS (3)
  1. PROZAC [Suspect]
     Indication: ANXIETY
     Dosage: 20 MG DAY
     Route: 048
     Dates: end: 20050101
  2. STRATTERA [Suspect]
     Indication: ATTENTION DEFICIT/HYPERACTIVITY DISORDER
     Dosage: 40 MG DAY
     Dates: start: 20050101, end: 20050101
  3. WELLBUTRIN [Concomitant]

REACTIONS (4)
  - DIZZINESS [None]
  - DRUG INEFFECTIVE [None]
  - FEELING ABNORMAL [None]
  - SENSORY DISTURBANCE [None]
